FAERS Safety Report 4506683-X (Version None)
Quarter: 2004Q4

REPORT INFORMATION
  Report Type: 
  Country: None (occurrence: None)
  Receive Date: 20041117
  Receipt Date: 20041104
  Transmission Date: 20050328
  Serious: Yes (Hospitalization)
  Sender: FDA-Public Use
  Company Number: 2004-BP-09241BP

PATIENT
  Sex: Male

DRUGS (3)
  1. AGGRENOX [Suspect]
     Indication: CEREBROVASCULAR ACCIDENT PROPHYLAXIS
     Dosage: SEE IMAGE
     Dates: start: 20020522
  2. FLOMAX [Suspect]
     Dosage: 1 CAPSULE DAILY
     Dates: start: 19970101
  3. CELEBREX [Concomitant]

REACTIONS (16)
  - AGGRESSION [None]
  - ARTHRITIS BACTERIAL [None]
  - ARTHRITIS INFECTIVE [None]
  - CALCULUS BLADDER [None]
  - CATARACT OPERATION [None]
  - CONFUSIONAL STATE [None]
  - DEMENTIA [None]
  - FALL [None]
  - GAIT DISTURBANCE [None]
  - HERNIA [None]
  - PARANOIA [None]
  - PARKINSON'S DISEASE [None]
  - PATELLA FRACTURE [None]
  - POSTOPERATIVE INFECTION [None]
  - STAPHYLOCOCCAL INFECTION [None]
  - TRANSIENT ISCHAEMIC ATTACK [None]
